FAERS Safety Report 18272237 (Version 2)
Quarter: 2020Q4

REPORT INFORMATION
  Report Type: Spontaneous
  Country: US (occurrence: US)
  Receive Date: 20200916
  Receipt Date: 20201223
  Transmission Date: 20210113
  Serious: Yes (Hospitalization)
  Sender: FDA-Public Use
  Company Number: US-PFIZER INC-2020355300

PATIENT
  Age: 67 Year
  Sex: Female

DRUGS (2)
  1. PALBOCICLIB [Suspect]
     Active Substance: PALBOCICLIB
     Indication: BREAST CANCER METASTATIC
     Dosage: 125 MG, DAILY FOR 21 DAYS
     Route: 048
  2. LETROZOLE. [Concomitant]
     Active Substance: LETROZOLE
     Indication: BREAST CANCER METASTATIC
     Dosage: 2.5 MG, DAILY
     Route: 048

REACTIONS (3)
  - Oesophageal stenosis [Recovering/Resolving]
  - Oesophagitis ulcerative [Recovering/Resolving]
  - Gastritis [Recovering/Resolving]
